FAERS Safety Report 22607289 (Version 1)
Quarter: 2023Q2

REPORT INFORMATION
  Report Type: Spontaneous
  Country: US (occurrence: US)
  Receive Date: 20230615
  Receipt Date: 20230615
  Transmission Date: 20230721
  Serious: Yes (Hospitalization)
  Sender: FDA-Public Use
  Company Number: US-drreddys-LIT/USA/23/0167001

PATIENT
  Age: 57 Year
  Sex: Female

DRUGS (6)
  1. CAPECITABINE [Suspect]
     Active Substance: CAPECITABINE
     Indication: Triple negative breast cancer
  2. GEMCITABINE [Suspect]
     Active Substance: GEMCITABINE
     Indication: Triple negative breast cancer
  3. PACLITAXEL [Suspect]
     Active Substance: PACLITAXEL
     Indication: Triple negative breast cancer
  4. SACITUZUMAB GOVITECAN [Suspect]
     Active Substance: SACITUZUMAB GOVITECAN
     Indication: Triple negative breast cancer
     Dosage: FIRST DOSE AT 10 MG/KG
     Route: 042
  5. SACITUZUMAB GOVITECAN [Suspect]
     Active Substance: SACITUZUMAB GOVITECAN
     Dosage: CYCLE 2 10 MG/KG, 19 DAYS AFTER HOSPITALISATION
     Route: 042
  6. SACITUZUMAB GOVITECAN [Suspect]
     Active Substance: SACITUZUMAB GOVITECAN
     Dosage: DOSE WAS REDUCED FROM 10 TO 7.5 MG/KG
     Route: 042

REACTIONS (7)
  - Triple negative breast cancer [Not Recovered/Not Resolved]
  - Metastases to lung [Unknown]
  - Disease progression [Unknown]
  - Neutropenic colitis [Recovered/Resolved]
  - Hypovolaemia [Unknown]
  - Hyponatraemia [Recovered/Resolved]
  - Drug ineffective [Unknown]
